FAERS Safety Report 23832137 (Version 1)
Quarter: 2024Q2

REPORT INFORMATION
  Report Type: Spontaneous
  Country: IT (occurrence: IT)
  Receive Date: 20240508
  Receipt Date: 20240508
  Transmission Date: 20240716
  Serious: Yes (Death, Other)
  Sender: FDA-Public Use
  Company Number: IT-ELI_LILLY_AND_COMPANY-IT202404015699

PATIENT
  Age: 62 Year
  Sex: Male
  Weight: 87 kg

DRUGS (4)
  1. PEMETREXED [Suspect]
     Active Substance: PEMETREXED
     Indication: Pleural mesothelioma malignant
     Dosage: UNK UNK, UNKNOWN
     Route: 065
     Dates: start: 20210129, end: 202105
  2. CARBOPLATIN [Suspect]
     Active Substance: CARBOPLATIN
     Indication: Pleural mesothelioma malignant
     Dosage: UNK UNK, UNKNOWN
     Route: 065
     Dates: start: 20210129, end: 202105
  3. NIVOLUMAB [Suspect]
     Active Substance: NIVOLUMAB
     Indication: Pleural mesothelioma malignant
     Dosage: UNK UNK, UNKNOWN
     Route: 065
     Dates: start: 20220310, end: 20240329
  4. IPILIMUMAB [Suspect]
     Active Substance: IPILIMUMAB
     Indication: Pleural mesothelioma malignant
     Dosage: UNK UNK, UNKNOWN
     Route: 065
     Dates: start: 20220310, end: 20220329

REACTIONS (2)
  - Death [Fatal]
  - Malignant neoplasm progression [Unknown]

NARRATIVE: CASE EVENT DATE: 20240410
